FAERS Safety Report 21412425 (Version 1)
Quarter: 2022Q4

REPORT INFORMATION
  Report Type: Spontaneous
  Country: US (occurrence: US)
  Receive Date: 20221005
  Receipt Date: 20221005
  Transmission Date: 20230113
  Serious: No
  Sender: FDA-Public Use
  Company Number: US-INTRA-CELLULAR THERAPIES, INC.-2022ICT00715

PATIENT
  Age: 19 Year
  Sex: Female

DRUGS (4)
  1. CAPLYTA [Suspect]
     Active Substance: LUMATEPERONE
     Indication: Bipolar disorder
     Dosage: 42 MG, 1X/DAY
     Route: 048
     Dates: end: 202206
  2. LAMICTAL [Suspect]
     Active Substance: LAMOTRIGINE
     Dosage: 150 MG, 1X/DAY IN A.M.
  3. LAMICTAL [Suspect]
     Active Substance: LAMOTRIGINE
     Dosage: 100 MG, 1X/DAY HS
  4. RISPERDAL [Concomitant]
     Active Substance: RISPERIDONE
     Dosage: 0.5 MG, AS NEEDED

REACTIONS (5)
  - Serum serotonin increased [Recovered/Resolved]
  - Drug interaction [Recovered/Resolved]
  - Vomiting projectile [Recovered/Resolved]
  - Diarrhoea [Recovered/Resolved]
  - Headache [Recovered/Resolved]

NARRATIVE: CASE EVENT DATE: 20220619
